FAERS Safety Report 14804865 (Version 2)
Quarter: 2018Q2

REPORT INFORMATION
  Report Type: Spontaneous
  Country: US (occurrence: US)
  Receive Date: 20180425
  Receipt Date: 20180425
  Transmission Date: 20180711
  Serious: No
  Sender: FDA-Public Use
  Company Number: US-BAYER-2018-079180

PATIENT
  Sex: Male

DRUGS (6)
  1. BAYER ASPIRIN [Suspect]
     Active Substance: ASPIRIN
     Dosage: UNK
  2. ALEVE [Suspect]
     Active Substance: NAPROXEN SODIUM
     Indication: RHINALGIA
  3. ALEVE [Suspect]
     Active Substance: NAPROXEN SODIUM
     Indication: PAIN
  4. ALEVE [Suspect]
     Active Substance: NAPROXEN SODIUM
     Indication: PYREXIA
  5. ALEVE [Suspect]
     Active Substance: NAPROXEN SODIUM
     Indication: EAR PAIN
  6. ALEVE [Suspect]
     Active Substance: NAPROXEN SODIUM
     Indication: OROPHARYNGEAL PAIN

REACTIONS (1)
  - Drug ineffective [Unknown]
